FAERS Safety Report 25034786 (Version 1)
Quarter: 2025Q1

REPORT INFORMATION
  Report Type: Spontaneous
  Country: US (occurrence: US)
  Receive Date: 20250304
  Receipt Date: 20250304
  Transmission Date: 20250409
  Serious: Yes (Other)
  Sender: SANOFI AVENTIS
  Company Number: US-SANOFI-02428566

PATIENT
  Sex: Female

DRUGS (1)
  1. LANTUS SOLOSTAR [Suspect]
     Active Substance: INSULIN GLARGINE
     Indication: Diabetes mellitus
     Dosage: 62 IU, QD
     Route: 065
     Dates: start: 2010

REACTIONS (4)
  - Coma [Unknown]
  - Oesophageal rupture [Unknown]
  - Complication associated with device [Unknown]
  - Visual impairment [Unknown]
